FAERS Safety Report 4357458-6 (Version None)
Quarter: 2004Q2

REPORT INFORMATION
  Report Type: 
  Country: None (occurrence: None)
  Receive Date: 20040506
  Receipt Date: 20040420
  Transmission Date: 20050107
  Serious: Yes (Death, Disabling, Other)
  Sender: FDA-Public Use
  Company Number: 2001-UK-00456

PATIENT
  Age: 70 Year
  Sex: Male

DRUGS (7)
  1. PERSANTIN [Suspect]
     Indication: CEREBRAL ISCHAEMIA
     Dosage: 400 MG (200 MG, 2 IN 1 D) PO
     Route: 048
     Dates: start: 20010125
  2. PERSANTIN [Suspect]
     Indication: PROPHYLAXIS
     Dosage: 400 MG (200 MG, 2 IN 1 D) PO
     Route: 048
     Dates: start: 20010125
  3. ATENOLOL LIQUID (ATENOLOL) [Concomitant]
  4. BETADINE MOUTHWASH (POVIDONE-IODINE) [Concomitant]
  5. ASPIRIN [Concomitant]
  6. FLUOXETINE [Concomitant]
  7. NYSTATIN [Concomitant]

REACTIONS (17)
  - CANDIDIASIS [None]
  - DIET REFUSAL [None]
  - DYSPHAGIA [None]
  - FURUNCLE [None]
  - GENERAL PHYSICAL HEALTH DETERIORATION [None]
  - HAEMATOCHEZIA [None]
  - LOCALISED SKIN REACTION [None]
  - MEDICATION ERROR [None]
  - MOBILITY DECREASED [None]
  - MOUTH HAEMORRHAGE [None]
  - MOUTH ULCERATION [None]
  - OEDEMA MOUTH [None]
  - ORAL PAIN [None]
  - SCAB [None]
  - STOMATITIS [None]
  - SUDDEN DEATH [None]
  - TONGUE HAEMORRHAGE [None]
